FAERS Safety Report 6152386-8 (Version None)
Quarter: 2009Q2

REPORT INFORMATION
  Report Type: 
  Country: None (occurrence: None)
  Receive Date: 20090409
  Receipt Date: 20090327
  Transmission Date: 20091009
  Serious: Yes (Death, Hospitalization)
  Sender: FDA-Public Use
  Company Number: 2008000810

PATIENT
  Age: 9 Year
  Sex: Female

DRUGS (5)
  1. ERLOTNIB (ERLOTINIB HCL) (TABLET) (ERLOTINIB HCL) [Suspect]
     Indication: GLIOMA
     Dosage: (125 MG, 100 MG, QAM AND 25 MG, QHS), ORAL
     Route: 048
     Dates: start: 20070517
  2. ERLOTNIB (ERLOTINIB HCL) (TABLET) (ERLOTINIB HCL) [Suspect]
  3. RADIATION THERAPY [Suspect]
     Indication: GLIOMA
     Dates: start: 20070517
  4. LEVETIRACETAM [Concomitant]
  5. ACETAMINOPHEN [Concomitant]

REACTIONS (11)
  - BALANCE DISORDER [None]
  - BRAIN DEATH [None]
  - CEREBRAL HAEMORRHAGE [None]
  - COUGH [None]
  - DIABETES INSIPIDUS [None]
  - FALL [None]
  - HAEMORRHAGE INTRACRANIAL [None]
  - HEADACHE [None]
  - HYDROCEPHALUS [None]
  - RHINORRHOEA [None]
  - TUMOUR HAEMORRHAGE [None]
